FAERS Safety Report 24028986 (Version 2)
Quarter: 2024Q2

REPORT INFORMATION
  Report Type: Spontaneous
  Country: US (occurrence: US)
  Receive Date: 20240628
  Receipt Date: 20240628
  Transmission Date: 20240715
  Serious: Yes (Hospitalization)
  Sender: FDA-Public Use
  Company Number: US-ROCHE-10000001687

PATIENT
  Age: 66 Year
  Sex: Male

DRUGS (3)
  1. TOCILIZUMAB [Suspect]
     Active Substance: TOCILIZUMAB
     Indication: Rheumatoid arthritis
     Route: 065
  2. HYDROXYCHLOROQUINE [Suspect]
     Active Substance: HYDROXYCHLOROQUINE
     Indication: Rheumatoid arthritis
     Route: 065
  3. METHOTREXATE [Suspect]
     Active Substance: METHOTREXATE
     Indication: Rheumatoid arthritis
     Dosage: HIGH-DOSE
     Route: 065

REACTIONS (7)
  - Histoplasmosis disseminated [Recovering/Resolving]
  - Pneumocystis jirovecii pneumonia [Recovering/Resolving]
  - Rhinovirus infection [Recovering/Resolving]
  - Haemophilus infection [Recovering/Resolving]
  - Staphylococcal infection [Recovering/Resolving]
  - Enterobacter infection [Recovering/Resolving]
  - Pneumocystis jirovecii infection [Recovering/Resolving]
